FAERS Safety Report 12480357 (Version 4)
Quarter: 2016Q4

REPORT INFORMATION
  Report Type: Spontaneous
  Country: US (occurrence: US)
  Receive Date: 20160620
  Receipt Date: 20161003
  Transmission Date: 20170207
  Serious: Yes (Death, Hospitalization)
  Sender: FDA-Public Use
  Company Number: US-TAIHO ONCOLOGY INC-EU-2016-01293

PATIENT
  Age: 70 Year
  Sex: Male
  Weight: 60.5 kg

DRUGS (20)
  1. LONSURF [Suspect]
     Active Substance: TIPIRACIL HYDROCHLORIDE\TRIFLURIDINE
     Indication: OESOPHAGEAL CARCINOMA
     Dosage: LAST CYCLE 3 STARTED ON 21MAR2016
     Route: 048
     Dates: start: 20160225, end: 201602
  2. SYNTHROID [Concomitant]
     Active Substance: LEVOTHYROXINE SODIUM
     Dates: start: 20151105
  3. CARDIZEM [Concomitant]
     Active Substance: DILTIAZEM HYDROCHLORIDE
     Dates: start: 20160421, end: 20160720
  4. LONSURF [Suspect]
     Active Substance: TIPIRACIL HYDROCHLORIDE\TRIFLURIDINE
     Indication: OESOPHAGEAL CARCINOMA
     Dosage: CYCLE 1
     Route: 048
     Dates: start: 20160125, end: 2016
  5. ZOFRAN [Concomitant]
     Active Substance: ONDANSETRON HYDROCHLORIDE
     Indication: NAUSEA
     Dates: start: 20160322
  6. ERGOCALCIFEROL. [Concomitant]
     Active Substance: ERGOCALCIFEROL
     Dates: start: 20150825
  7. NORCO [Concomitant]
     Active Substance: ACETAMINOPHEN\HYDROCODONE BITARTRATE
     Indication: PAIN
     Dosage: NI
  8. LOPRESSOR [Concomitant]
     Active Substance: METOPROLOL TARTRATE
     Dosage: NI
  9. DUONEB [Concomitant]
     Active Substance: ALBUTEROL SULFATE\IPRATROPIUM BROMIDE
     Dates: start: 20160421, end: 20160720
  10. BABY ASPIRIN [Concomitant]
     Active Substance: ASPIRIN
     Dosage: NI
  11. LEVOTHROID [Concomitant]
     Active Substance: LEVOTHYROXINE SODIUM
     Dates: start: 20151105
  12. IMODIUM [Concomitant]
     Active Substance: LOPERAMIDE HYDROCHLORIDE
     Dosage: NI
  13. ZOVIRAX [Concomitant]
     Active Substance: ACYCLOVIR
     Dosage: NI
  14. XANAX [Concomitant]
     Active Substance: ALPRAZOLAM
     Dates: start: 20131024
  15. DECADRON [Concomitant]
     Active Substance: DEXAMETHASONE
     Dates: start: 20160303, end: 20160601
  16. RYTHMOL [Concomitant]
     Active Substance: PROPAFENONE HYDROCHLORIDE
     Dosage: NI
  17. COLECALCIFEROL [Concomitant]
     Active Substance: CHOLECALCIFEROL
     Dosage: NI
  18. PRILOSEC [Concomitant]
     Active Substance: OMEPRAZOLE MAGNESIUM
     Dates: start: 20131024
  19. FLOMAX [Concomitant]
     Active Substance: TAMSULOSIN HYDROCHLORIDE
     Dates: start: 20160118
  20. PACERONE [Concomitant]
     Active Substance: AMIODARONE HYDROCHLORIDE
     Dates: start: 20160421, end: 20160720

REACTIONS (5)
  - Off label use [Unknown]
  - Chronic obstructive pulmonary disease [Unknown]
  - Acute respiratory failure [Unknown]
  - Disease progression [Fatal]
  - Performance status decreased [Unknown]

NARRATIVE: CASE EVENT DATE: 20160125
